FAERS Safety Report 24592874 (Version 2)
Quarter: 2024Q4

REPORT INFORMATION
  Report Type: Report from Study
  Country: US (occurrence: US)
  Receive Date: 20241108
  Receipt Date: 20241112
  Transmission Date: 20250114
  Serious: Yes (Hospitalization, Other)
  Sender: BEIGENE
  Company Number: US-BEIGENE-BGN-2024-014635

PATIENT

DRUGS (1)
  1. BRUKINSA [Suspect]
     Active Substance: ZANUBRUTINIB
     Indication: Chronic lymphocytic leukaemia
     Dosage: 320 MILLIGRAM, DAILY
     Route: 048
     Dates: start: 20240826

REACTIONS (30)
  - Septic shock [Unknown]
  - Asthenia [Unknown]
  - Dyspnoea [Unknown]
  - Pneumonia [Unknown]
  - Lactic acidosis [Unknown]
  - Toxic encephalopathy [Unknown]
  - Thrombocytopenia [Recovering/Resolving]
  - Acute kidney injury [Recovered/Resolved]
  - Hypokalaemia [Unknown]
  - Fatigue [Unknown]
  - Full blood count decreased [Unknown]
  - Transfusion [Unknown]
  - Hospice care [Unknown]
  - Lymphocyte count increased [Unknown]
  - Anaemia [Recovering/Resolving]
  - Diarrhoea [Unknown]
  - Nasopharyngitis [Unknown]
  - Cold sweat [Unknown]
  - Dysphagia [Unknown]
  - Hypotension [Recovering/Resolving]
  - Sinus tachycardia [Unknown]
  - Atelectasis [Unknown]
  - Pleural effusion [Unknown]
  - Urinary tract infection [Unknown]
  - Diarrhoea infectious [Unknown]
  - Hyponatraemia [Recovered/Resolved]
  - Troponin increased [Unknown]
  - Hypomagnesaemia [Unknown]
  - Hypophosphataemia [Unknown]
  - Product use complaint [Unknown]

NARRATIVE: CASE EVENT DATE: 20240911
